FAERS Safety Report 11930401 (Version 1)
Quarter: 2016Q1

REPORT INFORMATION
  Report Type: Spontaneous
  Country: CH (occurrence: CH)
  Receive Date: 20160120
  Receipt Date: 20160120
  Transmission Date: 20160526
  Serious: Yes (Death, Hospitalization, Other)
  Sender: FDA-Public Use
  Company Number: CH-PFIZER INC-2016014067

PATIENT
  Age: 61 Year
  Sex: Male

DRUGS (1)
  1. SINQUAN [Suspect]
     Active Substance: DOXEPIN HYDROCHLORIDE
     Indication: INTENTIONAL OVERDOSE
     Dosage: UNK
     Route: 048
     Dates: start: 20160103, end: 20160103

REACTIONS (10)
  - Cardiogenic shock [Fatal]
  - Intentional overdose [Fatal]
  - Hypoxia [Fatal]
  - Epilepsy [Fatal]
  - Hypothermia [Recovered/Resolved]
  - Toxicity to various agents [Fatal]
  - Depressed level of consciousness [Fatal]
  - Electrocardiogram ST segment elevation [Fatal]
  - Multiple organ dysfunction syndrome [Fatal]
  - Electrocardiogram ST segment depression [Fatal]

NARRATIVE: CASE EVENT DATE: 20160103
